FAERS Safety Report 4776924-2 (Version None)
Quarter: 2005Q3

REPORT INFORMATION
  Report Type: 
  Country: None (occurrence: None)
  Receive Date: 20050915
  Receipt Date: 20050826
  Transmission Date: 20060218
  Serious: Yes (Death, Hospitalization)
  Sender: FDA-Public Use
  Company Number: EWC050744753

PATIENT
  Age: 53 Year
  Sex: Male

DRUGS (2)
  1. ZYPREXA [Suspect]
  2. ANALGESIC [Concomitant]

REACTIONS (4)
  - HEADACHE [None]
  - INTENTIONAL MISUSE [None]
  - MULTIPLE DRUG OVERDOSE [None]
  - SUICIDE ATTEMPT [None]
